FAERS Safety Report 9390427 (Version 1)
Quarter: 2013Q3

REPORT INFORMATION
  Report Type: Spontaneous
  Country: IT (occurrence: IT)
  Receive Date: 20130709
  Receipt Date: 20130709
  Transmission Date: 20140515
  Serious: Yes (Other)
  Sender: FDA-Public Use
  Company Number: PHHY2013IT072223

PATIENT
  Age: 30 Year
  Sex: Female

DRUGS (2)
  1. RASILEZ [Suspect]
     Indication: GITELMAN^S SYNDROME
     Dosage: 300 MG, DAILY
  2. RASILEZ [Suspect]
     Indication: OFF LABEL USE
     Dosage: 600 MG, DAILY
     Dates: start: 20130705, end: 20130705

REACTIONS (4)
  - Vomiting [Recovered/Resolved]
  - Abdominal pain [Recovered/Resolved]
  - Hypotension [Recovered/Resolved]
  - Incorrect dose administered [Unknown]
